FAERS Safety Report 4323257-4 (Version None)
Quarter: 2004Q1

REPORT INFORMATION
  Report Type: 
  Country: None (occurrence: None)
  Receive Date: 20040322
  Receipt Date: 20040225
  Transmission Date: 20041129
  Serious: Yes (Life-Threatening)
  Sender: FDA-Public Use
  Company Number: PHBS2004JP02667

PATIENT
  Age: 54 Year
  Sex: Male

DRUGS (1)
  1. SIMULECT [Suspect]
     Indication: RENAL TRANSPLANT
     Dosage: INJECTION NOS

REACTIONS (2)
  - COMPLICATIONS OF TRANSPLANT SURGERY [None]
  - INTESTINAL ISCHAEMIA [None]
